FAERS Safety Report 25139860 (Version 2)
Quarter: 2025Q2

REPORT INFORMATION
  Report Type: Spontaneous
  Country: SK (occurrence: SK)
  Receive Date: 20250331
  Receipt Date: 20250611
  Transmission Date: 20250717
  Serious: No
  Sender: ROCHE
  Company Number: SK-ROCHE-10000240688

PATIENT

DRUGS (2)
  1. BEVACIZUMAB [Suspect]
     Active Substance: BEVACIZUMAB
     Indication: Neovascular age-related macular degeneration
     Route: 050
  2. BEVACIZUMAB [Suspect]
     Active Substance: BEVACIZUMAB
     Indication: Diabetic retinal oedema

REACTIONS (2)
  - Off label use [Unknown]
  - No adverse event [Unknown]
